FAERS Safety Report 12335021 (Version 1)
Quarter: 2016Q2

REPORT INFORMATION
  Report Type: Spontaneous
  Country: US (occurrence: US)
  Receive Date: 20160504
  Receipt Date: 20160504
  Transmission Date: 20160815
  Serious: No
  Sender: FDA-Public Use
  Company Number: US-ASTRAZENECA-2016SE44846

PATIENT
  Sex: Male
  Weight: 10.9 kg

DRUGS (1)
  1. SYNAGIS [Suspect]
     Active Substance: PALIVIZUMAB
     Route: 030
     Dates: start: 201510

REACTIONS (2)
  - Drug dose omission [Unknown]
  - Influenza [Unknown]

NARRATIVE: CASE EVENT DATE: 201512
